FAERS Safety Report 10201723 (Version 1)
Quarter: 2014Q2

REPORT INFORMATION
  Report Type: Spontaneous
  Country: US (occurrence: US)
  Receive Date: 20140528
  Receipt Date: 20140528
  Transmission Date: 20141212
  Serious: No
  Sender: FDA-Public Use
  Company Number: US-BRISTOL-MYERS SQUIBB COMPANY-19002146

PATIENT
  Age: 71 Year
  Sex: Female
  Weight: 86.17 kg

DRUGS (1)
  1. METFORMIN HCL [Suspect]
     Dosage: INITIALLY GIVEN 1000MG BID
     Route: 048

REACTIONS (1)
  - Diarrhoea [Recovered/Resolved]
